FAERS Safety Report 10253537 (Version 1)
Quarter: 2014Q2

REPORT INFORMATION
  Report Type: Spontaneous
  Country: US (occurrence: US)
  Receive Date: 20140623
  Receipt Date: 20140623
  Transmission Date: 20141212
  Serious: No
  Sender: FDA-Public Use
  Company Number: US-ZOGENIX, INC.-2011ZX000490

PATIENT
  Sex: Female
  Weight: 81.72 kg

DRUGS (2)
  1. SUMAVEL DOSEPRO [Suspect]
     Indication: MIGRAINE
  2. OXYGEN [Concomitant]
     Indication: LUNG DISORDER

REACTIONS (1)
  - Drug effect incomplete [Recovered/Resolved]
